FAERS Safety Report 11067964 (Version 1)
Quarter: 2015Q2

REPORT INFORMATION
  Report Type: Spontaneous
  Country: US (occurrence: None)
  Receive Date: 20150424
  Receipt Date: 20150424
  Transmission Date: 20150821
  Serious: No
  Sender: FDA-Public Use
  Company Number: None

PATIENT
  Age: 66 Year
  Sex: Male
  Weight: 104.33 kg

DRUGS (24)
  1. ASPIR [Concomitant]
     Active Substance: ASPIRIN
  2. TRAZODONE [Concomitant]
     Active Substance: TRAZODONE HYDROCHLORIDE
  3. CHOLECALCIFEROL [Concomitant]
     Active Substance: CHOLECALCIFEROL
  4. VOLTAREN [Concomitant]
     Active Substance: DICLOFENAC SODIUM
  5. METFORMIN [Concomitant]
     Active Substance: METFORMIN HYDROCHLORIDE
  6. CYCLOBENZAPRINE [Concomitant]
     Active Substance: CYCLOBENZAPRINE
  7. MEMANTINE [Concomitant]
     Active Substance: MEMANTINE
  8. SERTRALINE [Concomitant]
     Active Substance: SERTRALINE HYDROCHLORIDE
  9. PRAVASTATIN [Concomitant]
     Active Substance: PRAVASTATIN\PRAVASTATIN SODIUM
  10. MIRALAX [Concomitant]
     Active Substance: POLYETHYLENE GLYCOL 3350
  11. ISOSORBIDE MONONITRATE. [Concomitant]
     Active Substance: ISOSORBIDE MONONITRATE
  12. KCL [Concomitant]
     Active Substance: POTASSIUM CHLORIDE
  13. XARELTO [Concomitant]
     Active Substance: RIVAROXABAN
  14. TAMSULOSIN [Concomitant]
     Active Substance: TAMSULOSIN
  15. NITRO [Concomitant]
     Active Substance: NITROGLYCERIN
  16. BUSPIRONE [Concomitant]
     Active Substance: BUSPIRONE HYDROCHLORIDE
  17. CPA MACHINE [Concomitant]
  18. GABAPENTIN. [Concomitant]
     Active Substance: GABAPENTIN
  19. FUROSEMIDE. [Concomitant]
     Active Substance: FUROSEMIDE
  20. METOPROLOL [Concomitant]
     Active Substance: METOPROLOL
  21. OMEPRAZOLE. [Concomitant]
     Active Substance: OMEPRAZOLE
  22. HYDROCODONE [Concomitant]
     Active Substance: HYDROCODONE
  23. XARELTO [Suspect]
     Active Substance: RIVAROXABAN
     Indication: PULMONARY THROMBOSIS
     Dosage: 15MG + 20 MG, 1 TABS 2 TIMES A DAY FOR 21 DAYS, FOR 39 WEEKS 20 MG, MOUTH
     Route: 048
     Dates: start: 20150207
  24. MINTOX [Concomitant]
     Active Substance: ALUMINUM HYDROXIDE\DIMETHICONE\MAGNESIUM HYDROXIDE

REACTIONS (12)
  - Dizziness [None]
  - Feeling abnormal [None]
  - Pain [None]
  - Dysarthria [None]
  - Confusional state [None]
  - Dyspnoea [None]
  - Pollakiuria [None]
  - Headache [None]
  - Asthenia [None]
  - Cough [None]
  - Visual impairment [None]
  - Gingival pain [None]

NARRATIVE: CASE EVENT DATE: 20150222
